FAERS Safety Report 6418606-7 (Version None)
Quarter: 2009Q4

REPORT INFORMATION
  Report Type: 
  Country: None (occurrence: None)
  Receive Date: 20091028
  Receipt Date: 20091026
  Transmission Date: 20100525
  Serious: Yes (Death, Other)
  Sender: FDA-Public Use
  Company Number: PHEH2009US05527

PATIENT
  Sex: Female

DRUGS (6)
  1. GLEEVEC [Suspect]
     Indication: CHRONIC MYELOID LEUKAEMIA
     Dosage: 100 MG/DAY
     Route: 048
     Dates: start: 20050101, end: 20090301
  2. VASERETIC [Concomitant]
     Indication: HYPERTENSION
  3. PROSOM [Concomitant]
     Indication: INSOMNIA
     Dosage: 1 MG, HS
  4. DETROL [Concomitant]
     Indication: POLLAKIURIA
  5. ASPIRIN [Concomitant]
     Dosage: 325 MG, DAILY
  6. REGLAN [Concomitant]
     Indication: NAUSEA
     Dosage: 10 MG, ACHS

REACTIONS (6)
  - BLOOD ALBUMIN DECREASED [None]
  - BLOOD GLUCOSE INCREASED [None]
  - BLOOD UREA INCREASED [None]
  - DEATH [None]
  - HYPOKALAEMIA [None]
  - HYPOTHYROIDISM [None]
